FAERS Safety Report 9640400 (Version 3)
Quarter: 2014Q1

REPORT INFORMATION
  Report Type: Spontaneous
  Country: US (occurrence: None)
  Receive Date: 20131021
  Receipt Date: 20140127
  Transmission Date: 20141002
  Serious: Yes (Other)
  Sender: FDA-Public Use
  Company Number: 2013P1020131

PATIENT
  Age: 24 Year
  Sex: Female

DRUGS (2)
  1. MYORISAN [Suspect]
     Dates: start: 20130603
  2. UNSPECIFIED BIRTH CONTROL PILL [Concomitant]

REACTIONS (4)
  - Exposure during pregnancy [None]
  - Selective abortion [None]
  - Pregnancy test positive [None]
  - Drug dose omission [None]
